FAERS Safety Report 6069782-X (Version None)
Quarter: 2009Q1

REPORT INFORMATION
  Report Type: 
  Country: None (occurrence: None)
  Receive Date: 20090209
  Receipt Date: 20090202
  Transmission Date: 20090719
  Serious: Yes (Other)
  Sender: FDA-Public Use
  Company Number: BR-ASTRAZENECA-2009UW03207

PATIENT
  Age: 37 Year
  Sex: Female

DRUGS (3)
  1. SYMBICORT [Suspect]
     Indication: ASTHMA
     Dosage: 1604.5 MCG SIX TIMEES A DAY
     Route: 055
  2. SYMBICORT [Suspect]
     Dosage: 320/9
     Route: 055
  3. BEROTEC [Concomitant]

REACTIONS (3)
  - ASTHMA [None]
  - PNEUMONIA [None]
  - WHEEZING [None]
